FAERS Safety Report 5697734-8 (Version None)
Quarter: 2008Q2

REPORT INFORMATION
  Report Type: 
  Country: None (occurrence: None)
  Receive Date: 20080408
  Receipt Date: 20080404
  Transmission Date: 20081010
  Serious: Yes (Hospitalization)
  Sender: FDA-Public Use
  Company Number: D0056148A

PATIENT
  Age: 77 Year
  Sex: Male

DRUGS (5)
  1. ELONTRIL [Suspect]
     Indication: DEPRESSION
     Dosage: 150MG PER DAY
     Route: 048
  2. CARBIDOPA AND LEVODOPA [Concomitant]
     Dosage: 125MG TWICE PER DAY
     Route: 048
  3. BENALAPRIL [Concomitant]
     Dosage: 2.5MG PER DAY
     Route: 048
  4. ASPIRIN [Concomitant]
     Dosage: 100MG PER DAY
     Route: 048
  5. OMEPRAZOLE [Concomitant]
     Dosage: 20MG PER DAY
     Route: 048

REACTIONS (4)
  - AGITATION [None]
  - CONFUSIONAL STATE [None]
  - DELIRIUM [None]
  - MEMORY IMPAIRMENT [None]
